FAERS Safety Report 10739852 (Version 1)
Quarter: 2015Q1

REPORT INFORMATION
  Report Type: Spontaneous
  Country: US (occurrence: US)
  Receive Date: 20150127
  Receipt Date: 20150127
  Transmission Date: 20150721
  Serious: Yes (Hospitalization)
  Sender: FDA-Public Use
  Company Number: US-JNJFOC-20150111552

PATIENT
  Sex: Male

DRUGS (1)
  1. PARACETAMOL ADULT REGULAR STRENGTH [Suspect]
     Active Substance: ACETAMINOPHEN
     Indication: PRODUCT USED FOR UNKNOWN INDICATION
     Route: 048

REACTIONS (5)
  - Toxicity to various agents [Unknown]
  - Aspartate aminotransferase increased [None]
  - International normalised ratio increased [None]
  - Transaminases increased [Unknown]
  - Alanine aminotransferase increased [None]

NARRATIVE: CASE EVENT DATE: 20120226
